FAERS Safety Report 6681813-2 (Version None)
Quarter: 2010Q2

REPORT INFORMATION
  Report Type: 
  Country: None (occurrence: None)
  Receive Date: 20100414
  Receipt Date: 20100305
  Transmission Date: 20101027
  Serious: Yes (Hospitalization)
  Sender: FDA-Public Use
  Company Number: PHHY2010US20763

PATIENT
  Age: 42 Year
  Sex: Female

DRUGS (7)
  1. MYFORTIC [Suspect]
     Indication: RENAL TRANSPLANT
     Dosage: 1440 MG/DAY
     Route: 048
     Dates: start: 20040305
  2. PREDNISOLONE [Concomitant]
     Indication: IMMUNOSUPPRESSION
     Dosage: 5 MG DAILY
     Route: 048
     Dates: start: 19911204
  3. FLUOXETINE [Concomitant]
     Indication: DEPRESSION
     Dosage: 20 MG DAILY
     Route: 048
     Dates: start: 20010330
  4. OMEPRAZOLE [Concomitant]
     Indication: GASTROOESOPHAGEAL REFLUX DISEASE
     Dosage: 40 MG DAILY
     Route: 048
     Dates: start: 20040401
  5. CRESTOR [Concomitant]
     Indication: BLOOD CHOLESTEROL INCREASED
     Dosage: 5 MG DAILY
     Route: 048
     Dates: start: 20090305
  6. ASPIRIN [Concomitant]
     Indication: ANGIOPATHY
     Dosage: 81 MG DAILY
     Route: 048
     Dates: start: 20090305
  7. PROGRAF [Concomitant]
     Indication: IMMUNOSUPPRESSION
     Dosage: 5 MG DAILY
     Route: 048

REACTIONS (1)
  - RENAL DISORDER [None]
